FAERS Safety Report 24131948 (Version 1)
Quarter: 2024Q3

REPORT INFORMATION
  Report Type: Spontaneous
  Country: GB (occurrence: GB)
  Receive Date: 20240724
  Receipt Date: 20240724
  Transmission Date: 20241017
  Serious: Yes (Other)
  Sender: ELI LILLY AND CO
  Company Number: GB-MHRA-TPP47073148C515797YC1720354538795

PATIENT
  Age: 46 Year
  Sex: Female
  Weight: 114 kg

DRUGS (6)
  1. MOUNJARO [Suspect]
     Active Substance: TIRZEPATIDE
     Indication: Ill-defined disorder
     Dosage: 2.5 MG, WEEKLY (1/W)
     Route: 065
     Dates: start: 20240523
  2. PROMETHAZINE HYDROCHLORIDE [Concomitant]
     Active Substance: PROMETHAZINE HYDROCHLORIDE
     Indication: Product used for unknown indication
     Dosage: 1 DOSAGE FORM, EACH EVENING
     Dates: start: 20230522
  3. ARIPIPRAZOLE [Concomitant]
     Active Substance: ARIPIPRAZOLE
     Indication: Product used for unknown indication
     Dosage: 2 DOSAGE FORM, DAILY
     Dates: start: 20240109
  4. LANSOPRAZOLE [Concomitant]
     Active Substance: LANSOPRAZOLE
     Indication: Product used for unknown indication
     Dosage: 1 DOSAGE FORM, DAILY
     Dates: start: 20240109
  5. LEVEMIR [Concomitant]
     Active Substance: INSULIN DETEMIR
     Indication: Product used for unknown indication
     Dosage: UNK UNK, OTHER (USE AS DIRECTED)
     Dates: start: 20240109
  6. NOVORAPID [Concomitant]
     Active Substance: INSULIN ASPART
     Indication: Product used for unknown indication
     Dosage: UNK UNK, OTHER (USE AS DIRECTED)
     Dates: start: 20240109

REACTIONS (4)
  - Hypoglycaemia unawareness [Unknown]
  - Hypoglycaemia [Recovered/Resolved]
  - Blood glucose decreased [Unknown]
  - Off label use [Unknown]

NARRATIVE: CASE EVENT DATE: 20240707
